FAERS Safety Report 8143642-2 (Version None)
Quarter: 2012Q1

REPORT INFORMATION
  Report Type: 
  Country: None (occurrence: None)
  Receive Date: 20120217
  Receipt Date: 20120203
  Transmission Date: 20120608
  Serious: Yes (Other)
  Sender: FDA-Public Use
  Company Number: AU-COVIDIEN/TYCO HEALTHCARE/MALLINCKRODT-T201200619

PATIENT
  Sex: Male

DRUGS (1)
  1. EXALGO [Suspect]
     Indication: BACK PAIN
     Route: 048

REACTIONS (2)
  - BREAKTHROUGH PAIN [None]
  - DRUG ABUSE [None]
